FAERS Safety Report 15277965 (Version 1)
Quarter: 2018Q3

REPORT INFORMATION
  Report Type: Spontaneous
  Country: DE (occurrence: DE)
  Receive Date: 20180814
  Receipt Date: 20180814
  Transmission Date: 20181010
  Serious: Yes (Hospitalization)
  Sender: FDA-Public Use
  Company Number: DE-ELI_LILLY_AND_COMPANY-DE201808001967

PATIENT
  Age: 67 Year
  Sex: Female

DRUGS (15)
  1. ZYPREXA [Suspect]
     Active Substance: OLANZAPINE
     Dosage: 5 MG, DAILY
     Route: 048
     Dates: start: 20171103, end: 20171106
  2. ABILIFY [Suspect]
     Active Substance: ARIPIPRAZOLE
     Dosage: 5 MG, DAILY
     Route: 048
     Dates: start: 20171209, end: 20171220
  3. ZYPREXA [Suspect]
     Active Substance: OLANZAPINE
     Dosage: 10 MG, DAILY
     Route: 048
     Dates: start: 20171107, end: 20171206
  4. ABILIFY [Suspect]
     Active Substance: ARIPIPRAZOLE
     Dosage: 10 MG, DAILY
     Route: 048
     Dates: start: 20171116, end: 20171120
  5. ABILIFY [Suspect]
     Active Substance: ARIPIPRAZOLE
     Dosage: 5 MG, DAILY
     Route: 048
     Dates: start: 20171113, end: 20171115
  6. MILNACIPRAN [Suspect]
     Active Substance: MILNACIPRAN
     Indication: PRODUCT USED FOR UNKNOWN INDICATION
     Dosage: 50 MG, DAILY
     Route: 065
     Dates: start: 20171221, end: 20171228
  7. MILNACIPRAN [Suspect]
     Active Substance: MILNACIPRAN
     Dosage: 50 MG, DAILY
     Route: 048
     Dates: start: 20171123, end: 20171208
  8. MILNACIPRAN [Suspect]
     Active Substance: MILNACIPRAN
     Dosage: 75 MG, DAILY
     Route: 065
     Dates: start: 20171229
  9. ZYPREXA [Suspect]
     Active Substance: OLANZAPINE
     Dosage: 7.5 MG, DAILY
     Route: 048
     Dates: start: 20171209, end: 20171220
  10. ABILIFY [Suspect]
     Active Substance: ARIPIPRAZOLE
     Dosage: 10 MG, DAILY
     Route: 065
     Dates: start: 20171221, end: 20180109
  11. ABILIFY [Suspect]
     Active Substance: ARIPIPRAZOLE
     Dosage: 15 MG, DAILY
     Route: 048
     Dates: start: 20171121, end: 20171206
  12. ABILIFY [Suspect]
     Active Substance: ARIPIPRAZOLE
     Indication: PRODUCT USED FOR UNKNOWN INDICATION
     Dosage: 15 MG, DAILY
     Route: 065
     Dates: start: 20180110
  13. ABILIFY [Suspect]
     Active Substance: ARIPIPRAZOLE
     Dosage: 10 MG, DAILY
     Route: 048
     Dates: start: 20171207, end: 20171208
  14. MILNACIPRAN [Suspect]
     Active Substance: MILNACIPRAN
     Dosage: 25 MG, DAILY
     Route: 048
     Dates: start: 20171209, end: 20171220
  15. ZYPREXA [Suspect]
     Active Substance: OLANZAPINE
     Indication: PRODUCT USED FOR UNKNOWN INDICATION
     Dosage: 15 MG, DAILY
     Route: 048
     Dates: start: 20171207, end: 20171208

REACTIONS (1)
  - Hepatic enzyme increased [Recovered/Resolved]

NARRATIVE: CASE EVENT DATE: 20171207
